FAERS Safety Report 21508542 (Version 1)
Quarter: 2022Q4

REPORT INFORMATION
  Report Type: Spontaneous
  Country: US (occurrence: None)
  Receive Date: 20221026
  Receipt Date: 20221026
  Transmission Date: 20230113
  Serious: Yes (Hospitalization)
  Sender: FDA-Public Use
  Company Number: None

PATIENT
  Sex: Female

DRUGS (24)
  1. EVEROLIMUS [Suspect]
     Active Substance: EVEROLIMUS
     Indication: Malignant pituitary tumour
     Dosage: 10MG ORAL??TAKE 1 TABLET BY MOUTH EVERY DAY
     Route: 048
     Dates: start: 20220701
  2. ACETAMINOPHEN\CODEINE PHOSPHATE [Concomitant]
     Active Substance: ACETAMINOPHEN\CODEINE PHOSPHATE
  3. BUT/APAP/CAF [Concomitant]
  4. CABERGOLINE [Concomitant]
     Active Substance: CABERGOLINE
  5. COMBIPATCH DIS [Concomitant]
  6. DESPIRAMINE [Concomitant]
  7. FLUCONAZOLE [Concomitant]
     Active Substance: FLUCONAZOLE
  8. FLUDROCORTISONE [Concomitant]
     Active Substance: FLUDROCORTISONE
  9. FLUTICASONE [Concomitant]
     Active Substance: FLUTICASONE
  10. FUROSEMIDE [Concomitant]
     Active Substance: FUROSEMIDE
  11. ACETAMINOPHEN\HYDROCODONE [Concomitant]
     Active Substance: ACETAMINOPHEN\HYDROCODONE
  12. A-HYDROCORT [Concomitant]
     Active Substance: HYDROCORTISONE SODIUM SUCCINATE
  13. LORAZEPAM [Concomitant]
     Active Substance: LORAZEPAM
  14. MOMETASONE [Concomitant]
     Active Substance: MOMETASONE
  15. NAPROXEN [Concomitant]
     Active Substance: NAPROXEN
  16. ONDANSETRON [Concomitant]
     Active Substance: ONDANSETRON
  17. SANCUSO DIS [Concomitant]
  18. SENNA [Concomitant]
     Active Substance: SENNA LEAF\SENNOSIDES\SENNOSIDES A AND B
  19. SIGNIFOR LAR [Concomitant]
     Active Substance: PASIREOTIDE PAMOATE
  20. SYNTHROID [Concomitant]
     Active Substance: LEVOTHYROXINE SODIUM
  21. TEMOZOLOMIDE [Concomitant]
     Active Substance: TEMOZOLOMIDE
  22. TRAZODONE [Concomitant]
     Active Substance: TRAZODONE HYDROCHLORIDE
  23. XHANCE MIS [Concomitant]
  24. ZOLPIDEM [Concomitant]

REACTIONS (3)
  - Meningitis [None]
  - Infection [None]
  - Therapy interrupted [None]
